FAERS Safety Report 18018898 (Version 5)
Quarter: 2020Q3

REPORT INFORMATION
  Report Type: Spontaneous
  Country: FR (occurrence: FR)
  Receive Date: 20200714
  Receipt Date: 20200819
  Transmission Date: 20201103
  Serious: Yes (Other)
  Sender: FDA-Public Use
  Company Number: FR-AUROBINDO-AUR-APL-2020-034238

PATIENT
  Age: 70 Year
  Sex: Female

DRUGS (7)
  1. ARIPIPRAZOLE TABLETS [Suspect]
     Active Substance: ARIPIPRAZOLE
     Indication: BIPOLAR DISORDER
     Dosage: UNK
     Route: 065
  2. VALPROIC ACID. [Suspect]
     Active Substance: VALPROIC ACID
     Indication: BIPOLAR DISORDER
     Dosage: UNK
     Route: 065
  3. LITHIUM. [Suspect]
     Active Substance: LITHIUM
     Indication: BIPOLAR DISORDER
     Dosage: UNK
     Route: 065
  4. LAMOTRIGINE. [Suspect]
     Active Substance: LAMOTRIGINE
     Indication: BIPOLAR DISORDER
     Dosage: 30 MILLIGRAM, ONCE A DAY
     Route: 065
  5. VENLAFAXINE [Concomitant]
     Active Substance: VENLAFAXINE HYDROCHLORIDE
     Indication: PRODUCT USED FOR UNKNOWN INDICATION
     Dosage: UNK
     Route: 065
  6. LAMOTRIGINE. [Suspect]
     Active Substance: LAMOTRIGINE
     Indication: HEREDITARY ATAXIA
  7. VALPROIC ACID. [Suspect]
     Active Substance: VALPROIC ACID
     Indication: HEREDITARY ATAXIA
     Dosage: 37.5 MILLIGRAM, ONCE A DAY
     Route: 065

REACTIONS (3)
  - Hereditary ataxia [Recovered/Resolved]
  - Drug intolerance [Recovered/Resolved]
  - Condition aggravated [Recovered/Resolved]
